FAERS Safety Report 5139271-5 (Version None)
Quarter: 2006Q4

REPORT INFORMATION
  Report Type: 
  Country: None (occurrence: None)
  Receive Date: 20061030
  Receipt Date: 20061024
  Transmission Date: 20070319
  Serious: Yes (Hospitalization)
  Sender: FDA-Public Use
  Company Number: JP-BRISTOL-MYERS SQUIBB COMPANY-13556402

PATIENT
  Age: 5 Decade
  Sex: Female

DRUGS (1)
  1. KENACORT [Suspect]
     Indication: ASTHMA
     Dosage: 40MG/DAY STARTED IN JULY THEN INCREASED R/T LACK EFFECT
     Dates: start: 20060701

REACTIONS (1)
  - ADRENAL INSUFFICIENCY [None]
